FAERS Safety Report 4973927-X (Version None)
Quarter: 2006Q2

REPORT INFORMATION
  Report Type: 
  Country: None (occurrence: None)
  Receive Date: 20060417
  Receipt Date: 20060407
  Transmission Date: 20061013
  Serious: Yes (Other)
  Sender: FDA-Public Use
  Company Number: 2006AP01649

PATIENT
  Age: 67 Year
  Sex: Female

DRUGS (4)
  1. IRESSA [Suspect]
     Indication: LUNG ADENOCARCINOMA
     Route: 048
     Dates: start: 20040619, end: 20060403
  2. WARFARIN [Concomitant]
     Route: 048
  3. HALCION [Concomitant]
     Route: 048
     Dates: start: 20051202
  4. RADIOTHERAPY [Concomitant]
     Indication: METASTASES TO CENTRAL NERVOUS SYSTEM
     Dosage: 30 GY
     Dates: start: 20060307, end: 20060320

REACTIONS (1)
  - IMPETIGO [None]
